FAERS Safety Report 8130484-7 (Version None)
Quarter: 2012Q1

REPORT INFORMATION
  Report Type: 
  Country: None (occurrence: None)
  Receive Date: 20120210
  Receipt Date: 20120207
  Transmission Date: 20120608
  Serious: Yes (Other)
  Sender: FDA-Public Use
  Company Number: US-AMGEN-USASP2012002021

PATIENT
  Age: 56 Year
  Sex: Female

DRUGS (11)
  1. AVASTIN [Concomitant]
     Indication: BREAST CANCER METASTATIC
     Dosage: 800 MG, PER CHEMO REGIM
     Dates: start: 20100519, end: 20101020
  2. XGEVA [Suspect]
     Indication: METASTASES TO BONE
     Dosage: 120 MG, QMO
     Route: 058
     Dates: start: 20110328, end: 20111212
  3. GEMZAR [Concomitant]
     Indication: BREAST CANCER METASTATIC
     Dosage: 1140 MG, UNK
     Dates: start: 20110314, end: 20110718
  4. GEMZAR [Concomitant]
     Dosage: 1000 MG, UNK
     Dates: start: 20110916, end: 20110916
  5. NAVELBINE [Concomitant]
     Dosage: 35 MG, UNK
     Dates: start: 20111128, end: 20120103
  6. ABRAXANE [Concomitant]
     Indication: BREAST CANCER METASTATIC
     Dosage: 130 MG, UNK
     Dates: start: 20100512, end: 20101020
  7. NAVELBINE [Concomitant]
     Indication: BREAST CANCER METASTATIC
     Dosage: 40 MG, UNK
     Dates: start: 20111007, end: 20111111
  8. CISPLATIN [Suspect]
     Indication: BREAST CANCER METASTATIC
     Dosage: 43 MG, UNK
     Dates: start: 20110314, end: 20110916
  9. ZOMETA [Concomitant]
     Indication: BREAST CANCER METASTATIC
     Dosage: 4 MG, UNK
     Dates: start: 20100519, end: 20110112
  10. FASLODEX [Concomitant]
     Indication: BREAST CANCER METASTATIC
     Dosage: 500 UNK, UNK
     Dates: start: 20101217
  11. CISPLATIN [Suspect]
     Dosage: 40 MG, UNK
     Dates: start: 20110826, end: 20110916

REACTIONS (1)
  - HYPOMAGNESAEMIA [None]
